FAERS Safety Report 4378418-5 (Version None)
Quarter: 2004Q2

REPORT INFORMATION
  Report Type: 
  Country: None (occurrence: None)
  Receive Date: 20040609
  Receipt Date: 20040607
  Transmission Date: 20050107
  Serious: Yes (Other)
  Sender: FDA-Public Use
  Company Number: KII-2003-0010973

PATIENT
  Sex: Female

DRUGS (3)
  1. UNIPHYL [Suspect]
     Indication: DRUG USE FOR UNKNOWN INDICATION
  2. CIPRO [Suspect]
     Indication: DRUG USE FOR UNKNOWN INDICATION
  3. CIMETIDINE [Suspect]
     Indication: DRUG USE FOR UNKNOWN INDICATION

REACTIONS (5)
  - DRUG INTERACTION [None]
  - DRUG LEVEL INCREASED [None]
  - MEDICATION ERROR [None]
  - RESPIRATORY DISTRESS [None]
  - RESPIRATORY RATE INCREASED [None]
